FAERS Safety Report 19936938 (Version 3)
Quarter: 2022Q4

REPORT INFORMATION
  Report Type: Report from Study
  Country: US (occurrence: US)
  Receive Date: 20211009
  Receipt Date: 20221129
  Transmission Date: 20230113
  Serious: No
  Sender: FDA-Public Use
  Company Number: US-NOVARTISTESTPH-NVSC2021US226428

PATIENT
  Sex: Female

DRUGS (1)
  1. ENTRESTO [Suspect]
     Active Substance: SACUBITRIL\VALSARTAN
     Indication: Product used for unknown indication
     Dosage: 1 DOSAGE FORM, BID (24/26 MG)
     Route: 048
     Dates: start: 202107

REACTIONS (7)
  - Heart rate increased [Unknown]
  - Back pain [Unknown]
  - Neuralgia [Unknown]
  - Fatigue [Unknown]
  - Dizziness [Unknown]
  - Normal newborn [Unknown]
  - Maternal exposure during pregnancy [Unknown]
